FAERS Safety Report 4406465-3 (Version None)
Quarter: 2004Q3

REPORT INFORMATION
  Report Type: 
  Country: None (occurrence: None)
  Receive Date: 20040723
  Receipt Date: 20031121
  Transmission Date: 20050211
  Serious: Yes (Death)
  Sender: FDA-Public Use
  Company Number: US-MERCK-0311USA02548

PATIENT
  Age: 52 Year
  Sex: Male
  Weight: 93 kg

DRUGS (3)
  1. TYLENOL [Concomitant]
     Route: 065
  2. PEPCID [Concomitant]
     Indication: DYSPEPSIA
     Route: 048
  3. VIOXX [Suspect]
     Indication: GOUT
     Route: 048
     Dates: start: 20000101, end: 20010824

REACTIONS (2)
  - BLOOD CHOLESTEROL INCREASED [None]
  - MYOCARDIAL INFARCTION [None]
